FAERS Safety Report 7459549-X (Version None)
Quarter: 2011Q2

REPORT INFORMATION
  Report Type: 
  Country: None (occurrence: None)
  Receive Date: 20110505
  Receipt Date: 20110425
  Transmission Date: 20111010
  Serious: Yes (Other)
  Sender: FDA-Public Use
  Company Number: CH-BRISTOL-MYERS SQUIBB COMPANY-15698335

PATIENT
  Age: 72 Year
  Sex: Male

DRUGS (3)
  1. TRAZODONE HCL [Suspect]
     Dosage: STARTED 1 YEAR BEFORE DOSES INCREASED TO 300MG
  2. LITHIUM [Suspect]
     Dosage: STARTED 1 YEAR BEFORE
  3. BUPROPION [Suspect]
     Indication: DEPRESSION
     Dosage: DOSES INCREASED TO 300MG

REACTIONS (1)
  - METABOLIC ENCEPHALOPATHY [None]
